FAERS Safety Report 23475836 (Version 1)
Quarter: 2024Q1

REPORT INFORMATION
  Report Type: Report from Study
  Country: US (occurrence: US)
  Receive Date: 20240204
  Receipt Date: 20240204
  Transmission Date: 20240410
  Serious: No
  Sender: FDA-Public Use
  Company Number: US-EXELIXIS-CABO-23060980

PATIENT
  Sex: Male
  Weight: 64.853 kg

DRUGS (10)
  1. CABOMETYX [Suspect]
     Active Substance: CABOZANTINIB S-MALATE
     Indication: Renal cancer
     Dosage: 40 MG, QD
     Route: 048
     Dates: start: 20230131
  2. CABOMETYX [Suspect]
     Active Substance: CABOZANTINIB S-MALATE
     Dosage: 40 MG, QD
     Route: 048
  3. CYCLOBENZAPRINE [Concomitant]
     Active Substance: CYCLOBENZAPRINE
  4. GABAPENTIN [Concomitant]
     Active Substance: GABAPENTIN
  5. LIPITOR [Concomitant]
     Active Substance: ATORVASTATIN CALCIUM
  6. LISINOPRIL [Concomitant]
     Active Substance: LISINOPRIL
  7. MORPHINE SULFATE [Concomitant]
     Active Substance: MORPHINE SULFATE
  8. TRAZODONE [Concomitant]
     Active Substance: TRAZODONE HYDROCHLORIDE
  9. TRICOR [Concomitant]
     Active Substance: FENOFIBRATE
  10. ZOLOFT [Concomitant]
     Active Substance: SERTRALINE HYDROCHLORIDE

REACTIONS (10)
  - Hypoaesthesia [Unknown]
  - Paraesthesia [Unknown]
  - Fatigue [Unknown]
  - Taste disorder [Unknown]
  - Palmar-plantar erythrodysaesthesia syndrome [Unknown]
  - Hypertension [Unknown]
  - Stomatitis [Unknown]
  - Nausea [Unknown]
  - Rash [Unknown]
  - Product dose omission issue [Unknown]
